FAERS Safety Report 19470445 (Version 1)
Quarter: 2021Q2

REPORT INFORMATION
  Report Type: Other
  Country: NZ (occurrence: NZ)
  Receive Date: 20210628
  Receipt Date: 20210628
  Transmission Date: 20210717
  Serious: Yes (Other)
  Sender: FDA-Public Use
  Company Number: NZ-B.BRAUN MEDICAL INC.-2113217

PATIENT
  Age: 39 Year
  Sex: Female

DRUGS (3)
  1. POTASSIUM CHLORIDE FOR INJECTION CONCENTRATE USP 0264?1940?20 (ANDA 08 [Suspect]
     Active Substance: POTASSIUM CHLORIDE
     Indication: CAESAREAN SECTION
  2. POTASSIUM CHLORIDE FOR INJECTION CONCENTRATE USP 0264?1940?20 (ANDA 08 [Suspect]
     Active Substance: POTASSIUM CHLORIDE
     Indication: SCAR
  3. METHOTREXATE. [Suspect]
     Active Substance: METHOTREXATE

REACTIONS (3)
  - Coma scale abnormal [None]
  - Hypotension [None]
  - Vaginal haemorrhage [None]
